FAERS Safety Report 18132407 (Version 1)
Quarter: 2020Q3

REPORT INFORMATION
  Report Type: Spontaneous
  Country: IT (occurrence: IT)
  Receive Date: 20200811
  Receipt Date: 20200811
  Transmission Date: 20201103
  Serious: Yes (Other)
  Sender: FDA-Public Use
  Company Number: IT-UCBSA-2020031243

PATIENT
  Age: 76 Year
  Sex: Male

DRUGS (3)
  1. NEUPRO [Suspect]
     Active Substance: ROTIGOTINE
     Indication: PRODUCT USED FOR UNKNOWN INDICATION
     Dosage: UNKNOWN
  2. ONGENTYS [Suspect]
     Active Substance: OPICAPONE
     Indication: ON AND OFF PHENOMENON
     Dosage: UNKNOWN
  3. MADOPAR [Suspect]
     Active Substance: BENSERAZIDE HYDROCHLORIDE\LEVODOPA
     Indication: ON AND OFF PHENOMENON
     Dosage: LEVODOPA DOSAGE: 900 (UNITS NOT REPORTED), UNKNOWN

REACTIONS (21)
  - Sleep disorder [Unknown]
  - Anosmia [Unknown]
  - Tremor [Unknown]
  - Balance disorder [Unknown]
  - Anxiety [Unknown]
  - Dysphagia [Unknown]
  - Gait disturbance [Unknown]
  - Therapeutic response shortened [Unknown]
  - Bradykinesia [Unknown]
  - Confusional state [Unknown]
  - Freezing phenomenon [Unknown]
  - Dysphonia [Unknown]
  - Dystonia [Unknown]
  - Dementia [Unknown]
  - Delusion [Unknown]
  - Constipation [Unknown]
  - Reduced facial expression [Unknown]
  - Hallucination [Unknown]
  - Saliva altered [Unknown]
  - Pain [Unknown]
  - Muscle rigidity [Unknown]
